FAERS Safety Report 6602268-X (Version None)
Quarter: 2010Q1

REPORT INFORMATION
  Report Type: 
  Country: None (occurrence: None)
  Receive Date: 20100225
  Receipt Date: 20100218
  Transmission Date: 20100710
  Serious: Yes (Other)
  Sender: FDA-Public Use
  Company Number: GB-B.I. PHARMACEUTICALS,INC./RIDGEFIELD-2010-DE-01165GD

PATIENT
  Age: 12 Year
  Weight: 25.5 kg

DRUGS (2)
  1. CLONIDINE [Suspect]
     Indication: SEDATIVE THERAPY
     Route: 008
  2. OPIOID [Suspect]
     Indication: ANALGESIC THERAPY

REACTIONS (1)
  - RESPIRATORY DEPRESSION [None]
